FAERS Safety Report 9306450 (Version 1)
Quarter: 2013Q2

REPORT INFORMATION
  Report Type: Spontaneous
  Country: US (occurrence: US)
  Receive Date: 20130523
  Receipt Date: 20130523
  Transmission Date: 20140414
  Serious: No
  Sender: FDA-Public Use
  Company Number: US-009507513-1305USA011480

PATIENT
  Sex: Female

DRUGS (1)
  1. CLARITIN-D [Suspect]
     Dosage: UNK
     Route: 048

REACTIONS (1)
  - Heart rate increased [Unknown]
